FAERS Safety Report 4808194-0 (Version None)
Quarter: 2005Q4

REPORT INFORMATION
  Report Type: 
  Country: None (occurrence: None)
  Receive Date: 20051021
  Receipt Date: 20051012
  Transmission Date: 20060501
  Serious: Yes (Life-Threatening, Hospitalization, Disabling, Other)
  Sender: FDA-Public Use
  Company Number: 2005-09-0270

PATIENT
  Age: 44 Year
  Sex: Male
  Weight: 79.3795 kg

DRUGS (11)
  1. PEG-INTRON [Suspect]
     Indication: HEPATITIS B
     Dosage: 50 MCG SUBCUTANEOUS
     Route: 058
     Dates: start: 20050621, end: 20050801
  2. PEG-INTRON [Suspect]
     Indication: HEPATITIS C
     Dosage: 50 MCG SUBCUTANEOUS
     Route: 058
     Dates: start: 20050621, end: 20050801
  3. REBETOL [Suspect]
     Indication: HEPATITIS B
     Dosage: 600 MG ORAL
     Route: 048
     Dates: start: 20050621, end: 20050801
  4. REBETOL [Suspect]
     Indication: HEPATITIS C
     Dosage: 600 MG ORAL
     Route: 048
     Dates: start: 20050621, end: 20050801
  5. LEXAPRO [Suspect]
     Dosage: 20 MG ORAL
     Route: 048
  6. CLONIDINE HCL [Concomitant]
  7. MORPHINE SULFATE TABLETS [Concomitant]
  8. ... [Concomitant]
  9. NEXIUM [Concomitant]
  10. XANAX [Concomitant]
  11. KLONOPIN [Concomitant]

REACTIONS (13)
  - ABASIA [None]
  - ANAEMIA [None]
  - APHASIA [None]
  - CEREBROVASCULAR ACCIDENT [None]
  - CERVICAL VERTEBRAL FRACTURE [None]
  - CONVULSION [None]
  - DRUG HYPERSENSITIVITY [None]
  - LOSS OF CONSCIOUSNESS [None]
  - MEMORY IMPAIRMENT [None]
  - MENTAL DISORDER [None]
  - MYOCARDIAL INFARCTION [None]
  - NEOPLASM MALIGNANT [None]
  - RENAL FAILURE [None]
